FAERS Safety Report 20804356 (Version 19)
Quarter: 2022Q3

REPORT INFORMATION
  Report Type: Spontaneous
  Country: CA (occurrence: CA)
  Receive Date: 20220509
  Receipt Date: 20220830
  Transmission Date: 20221027
  Serious: Yes (Other)
  Sender: FDA-Public Use
  Company Number: CA-GLAXOSMITHKLINE-CA2022073071

PATIENT

DRUGS (6)
  1. ZEJULA [Suspect]
     Active Substance: NIRAPARIB
     Indication: Ovarian epithelial cancer
     Dosage: 200 MG, QD
     Route: 048
     Dates: start: 20220420, end: 20220501
  2. ZEJULA [Suspect]
     Active Substance: NIRAPARIB
     Indication: Fallopian tube cancer
     Dosage: 100 MG, QD
     Route: 048
     Dates: start: 20220503, end: 20220504
  3. ZEJULA [Suspect]
     Active Substance: NIRAPARIB
     Indication: Malignant peritoneal neoplasm
     Dosage: 100 MG, QD
     Route: 048
     Dates: start: 20220601, end: 20220603
  4. ZEJULA [Suspect]
     Active Substance: NIRAPARIB
     Dosage: 100 MG, QD
     Route: 048
     Dates: start: 20220609, end: 20220810
  5. VITAMIN B12 [Concomitant]
     Active Substance: CYANOCOBALAMIN
     Indication: Product used for unknown indication
     Dosage: UNK UNK, Z (3/WEEK)
  6. SIMVASTATIN [Concomitant]
     Active Substance: SIMVASTATIN
     Indication: Product used for unknown indication
     Dosage: UNK

REACTIONS (30)
  - Vein rupture [Unknown]
  - Confusional state [Recovered/Resolved]
  - Mood altered [Not Recovered/Not Resolved]
  - Abnormal behaviour [Not Recovered/Not Resolved]
  - Hypertension [Not Recovered/Not Resolved]
  - Erythema [Not Recovered/Not Resolved]
  - Essential tremor [Not Recovered/Not Resolved]
  - Condition aggravated [Not Recovered/Not Resolved]
  - Agitation [Not Recovered/Not Resolved]
  - Headache [Unknown]
  - Urinary tract infection [Unknown]
  - Decreased appetite [Not Recovered/Not Resolved]
  - Heart rate increased [Unknown]
  - Blood pressure fluctuation [Not Recovered/Not Resolved]
  - White blood cell count decreased [Unknown]
  - Pain in extremity [Recovered/Resolved]
  - Blood potassium increased [Recovering/Resolving]
  - Coronavirus test positive [Unknown]
  - Rhinorrhoea [Unknown]
  - Pollakiuria [Unknown]
  - Constipation [Not Recovered/Not Resolved]
  - Flushing [Unknown]
  - Fatigue [Not Recovered/Not Resolved]
  - Malaise [Not Recovered/Not Resolved]
  - Abdominal discomfort [Unknown]
  - Irritability [Not Recovered/Not Resolved]
  - Pelvic discomfort [Unknown]
  - Sleep disorder [Not Recovered/Not Resolved]
  - Adverse drug reaction [Not Recovered/Not Resolved]
  - Therapeutic drug monitoring analysis not performed [Unknown]

NARRATIVE: CASE EVENT DATE: 20220502
